FAERS Safety Report 12359066 (Version 1)
Quarter: 2016Q2

REPORT INFORMATION
  Report Type: Spontaneous
  Country: None (occurrence: None)
  Receive Date: 20160511
  Receipt Date: 20160511
  Transmission Date: 20160815
  Serious: Yes (Disabling)
  Sender: FDA-Public Use
  Company Number: None

PATIENT
  Age: 49 Year
  Sex: Female

DRUGS (1)
  1. CIPROFLOXACIN. [Suspect]
     Active Substance: CIPROFLOXACIN
     Indication: ESCHERICHIA URINARY TRACT INFECTION
     Route: 048
     Dates: start: 20151103, end: 20151103

REACTIONS (5)
  - Toxicity to various agents [None]
  - Tendon injury [None]
  - Ligament injury [None]
  - Nervous system disorder [None]
  - Visual impairment [None]

NARRATIVE: CASE EVENT DATE: 20151103
